FAERS Safety Report 8883939 (Version 1)
Quarter: 2012Q4

REPORT INFORMATION
  Report Type: 
  Country: US (occurrence: US)
  Receive Date: 20121102
  Receipt Date: 20121102
  Transmission Date: 20130627
  Serious: No
  Sender: FDA-Public Use
  Company Number: US-ASTRAZENECA-2012SE24671

PATIENT
  Age: 64 Year
  Sex: Male
  Weight: 122.5 kg

DRUGS (5)
  1. CRESTOR [Suspect]
     Route: 048
  2. METFORMIN [Concomitant]
     Indication: DIABETES MELLITUS
  3. NOVOLOG [Concomitant]
     Indication: DIABETES MELLITUS
  4. LEVEMIR [Concomitant]
     Indication: DIABETES MELLITUS
  5. CELEXA [Concomitant]
     Indication: DEPRESSION

REACTIONS (6)
  - Musculoskeletal stiffness [Unknown]
  - Bone pain [Unknown]
  - Gait disturbance [Unknown]
  - Gout [Unknown]
  - Restless legs syndrome [Unknown]
  - Depression [Unknown]
